FAERS Safety Report 10403018 (Version 1)
Quarter: 2014Q1

REPORT INFORMATION
  Report Type: Spontaneous
  Country: US (occurrence: None)
  Receive Date: 20130815
  Receipt Date: 20130815
  Transmission Date: 20141002
  Serious: Yes (Other)
  Sender: FDA-Public Use
  Company Number: ADR-2010-8127

PATIENT
  Age: 14 Year
  Sex: Male

DRUGS (1)
  1. LIORESAL INTRATHECAL (BACLOFEN INJECTION) [Suspect]
     Indication: MUSCLE SPASTICITY
     Dosage: UNK MCG
     Route: 037

REACTIONS (7)
  - Vomiting [None]
  - Underdose [None]
  - Clonus [None]
  - Drug withdrawal syndrome [None]
  - Irritability [None]
  - Muscle spasticity [None]
  - Infusion site mass [None]
